FAERS Safety Report 7455612-8 (Version None)
Quarter: 2011Q2

REPORT INFORMATION
  Report Type: 
  Country: None (occurrence: None)
  Receive Date: 20110503
  Receipt Date: 20110428
  Transmission Date: 20111010
  Serious: Yes (Hospitalization)
  Sender: FDA-Public Use
  Company Number: IL-ROCHE-773945

PATIENT
  Age: 62 Year
  Sex: Male

DRUGS (1)
  1. PEGASYS [Suspect]
     Indication: HEPATITIS C
     Route: 065
     Dates: start: 20060101, end: 20070101

REACTIONS (10)
  - CHEST PAIN [None]
  - ASTHENIA [None]
  - DEPRESSION [None]
  - MEMORY IMPAIRMENT [None]
  - MUSCLE ATROPHY [None]
  - DYSPHONIA [None]
  - EMOTIONAL DISORDER [None]
  - DECREASED APPETITE [None]
  - PAROSMIA [None]
  - WEIGHT DECREASED [None]
